FAERS Safety Report 13771041 (Version 4)
Quarter: 2018Q2

REPORT INFORMATION
  Report Type: Report from Study
  Country: None (occurrence: DE)
  Receive Date: 20170720
  Receipt Date: 20180425
  Transmission Date: 20180711
  Serious: Yes (Hospitalization, Other)
  Sender: FDA-Public Use
  Company Number: DE-ABBVIE-17K-062-2036659-00

PATIENT
  Age: 67 Year
  Sex: Male
  Weight: 73 kg

DRUGS (7)
  1. SIMVASTATIN. [Concomitant]
     Active Substance: SIMVASTATIN
     Indication: PRODUCT USED FOR UNKNOWN INDICATION
  2. NOVALGIN (METAMIZOLE SODIUM) [Concomitant]
     Active Substance: METAMIZOLE SODIUM
     Indication: PRODUCT USED FOR UNKNOWN INDICATION
  3. TARGIN [Concomitant]
     Active Substance: NALOXONE HYDROCHLORIDE\OXYCODONE HYDROCHLORIDE
     Indication: PRODUCT USED FOR UNKNOWN INDICATION
     Dosage: 10/5MG
  4. RAMIPRIL. [Concomitant]
     Active Substance: RAMIPRIL
     Indication: PRODUCT USED FOR UNKNOWN INDICATION
  5. HUMIRA [Suspect]
     Active Substance: ADALIMUMAB
     Indication: PSORIASIS
     Route: 058
     Dates: start: 20150119
  6. PANTOZOL [Concomitant]
     Active Substance: PANTOPRAZOLE SODIUM
     Indication: PRODUCT USED FOR UNKNOWN INDICATION
  7. ASPIRIN. [Concomitant]
     Active Substance: ASPIRIN
     Indication: PRODUCT USED FOR UNKNOWN INDICATION

REACTIONS (14)
  - Intervertebral disc protrusion [Recovered/Resolved]
  - Spondyloarthropathy [Unknown]
  - Back pain [Recovered/Resolved]
  - Intervertebral disc degeneration [Unknown]
  - Scoliosis [Unknown]
  - Spinal compression fracture [Unknown]
  - Myelopathy [Unknown]
  - Spinal disorder [Unknown]
  - Bone marrow oedema [Recovered/Resolved]
  - Spinal cord compression [Recovered/Resolved]
  - Stent placement [Unknown]
  - Osteochondrosis [Recovered/Resolved]
  - Bone contusion [Recovered/Resolved]
  - Osteoporosis [Unknown]

NARRATIVE: CASE EVENT DATE: 2016
